FAERS Safety Report 21373588 (Version 1)
Quarter: 2022Q3

REPORT INFORMATION
  Report Type: Spontaneous
  Country: JP (occurrence: JP)
  Receive Date: 20220925
  Receipt Date: 20220925
  Transmission Date: 20221027
  Serious: Yes (Hospitalization)
  Sender: FDA-Public Use
  Company Number: JP-DSJP-DSJ-2022-133343

PATIENT
  Age: 82 Year
  Sex: Female

DRUGS (1)
  1. DENOSUMAB [Suspect]
     Active Substance: DENOSUMAB
     Indication: Product used for unknown indication
     Dosage: UNK, ABOUT TEN TIMES
     Route: 065

REACTIONS (2)
  - Fracture [Not Recovered/Not Resolved]
  - Gingivitis [Not Recovered/Not Resolved]
